FAERS Safety Report 23606600 (Version 3)
Quarter: 2024Q1

REPORT INFORMATION
  Report Type: Spontaneous
  Country: US (occurrence: US)
  Receive Date: 20240307
  Receipt Date: 20240322
  Transmission Date: 20240409
  Serious: No
  Sender: FDA-Public Use
  Company Number: US-OPELLA-2024OHG006837

PATIENT
  Age: 82 Year
  Sex: Female

DRUGS (1)
  1. XYZAL ALLERGY 24HR [Suspect]
     Active Substance: LEVOCETIRIZINE DIHYDROCHLORIDE
     Indication: Hypersensitivity
     Route: 065

REACTIONS (5)
  - Ear discomfort [Recovered/Resolved]
  - Dysphonia [Recovered/Resolved]
  - Sinus disorder [Recovered/Resolved]
  - Illness [Recovered/Resolved]
  - Product use issue [Unknown]
